FAERS Safety Report 10079866 (Version 1)
Quarter: 2014Q2

REPORT INFORMATION
  Report Type: Report from Study
  Country: CA (occurrence: CA)
  Receive Date: 20140415
  Receipt Date: 20140415
  Transmission Date: 20141212
  Serious: Yes (Other)
  Sender: FDA-Public Use
  Company Number: CA-JNJFOC-20140407367

PATIENT
  Sex: Female
  Weight: 73 kg

DRUGS (4)
  1. REMICADE [Suspect]
     Indication: RHEUMATOID ARTHRITIS
     Route: 042
     Dates: start: 20100920, end: 20140327
  2. SULFASALAZINE [Concomitant]
     Route: 065
  3. ARAVA [Concomitant]
     Route: 065
  4. PLAQUENIL [Concomitant]
     Route: 065

REACTIONS (2)
  - Amnesia [Unknown]
  - Confusional state [Unknown]
